FAERS Safety Report 9840765 (Version 1)
Quarter: 2013Q4

REPORT INFORMATION
  Report Type: Spontaneous
  Country: US (occurrence: None)
  Receive Date: 20131211
  Receipt Date: 20131211
  Transmission Date: 20140711
  Serious: Yes (Other)
  Sender: FDA-Public Use
  Company Number: ALL1-2012-06582

PATIENT
  Age: 46 Year
  Sex: Female
  Weight: 56.7 kg

DRUGS (5)
  1. VYVANSE (LISDEXAMFETAMINE DIMESYLATE) CAPSULE [Suspect]
     Indication: ATTENTION DEFICIT/HYPERACTIVITY DISORDER
     Dosage: 40 MG, 1X/DAY: QD
     Route: 048
     Dates: end: 20121224
  2. ATENOLOL (ATENOLOL) TABLET [Suspect]
     Dosage: 25 MG, 1X/DAY: QD, ORAL
     Route: 048
     Dates: start: 2009, end: 20121222
  3. KLONOPIN (CLONAZEPAM) [Concomitant]
  4. CITALOPRAM (CITALOPRAM) [Concomitant]
  5. AMBIEN (ZOLPIDEM TARTRATE) [Concomitant]

REACTIONS (3)
  - Heart rate increased [None]
  - Blood pressure increased [None]
  - Wrong technique in drug usage process [None]
